FAERS Safety Report 9605605 (Version 2)
Quarter: 2013Q4

REPORT INFORMATION
  Report Type: Spontaneous
  Country: US (occurrence: US)
  Receive Date: 20131008
  Receipt Date: 20131008
  Transmission Date: 20140711
  Serious: Yes (Hospitalization)
  Sender: FDA-Public Use
  Company Number: US-BAXTER-2013BAX037711

PATIENT
  Age: 67 Year
  Sex: Female

DRUGS (9)
  1. DIANEAL LOW CALCIUM [Suspect]
     Indication: RENAL FAILURE CHRONIC
     Route: 033
     Dates: start: 2005
  2. DIANEAL LOW CALCIUM [Suspect]
     Route: 033
     Dates: start: 2005
  3. DIANEAL LOW CALCIUM [Suspect]
     Route: 033
     Dates: start: 2005
  4. DIANEAL LOW CALCIUM [Suspect]
     Indication: RENAL FAILURE CHRONIC
     Route: 033
     Dates: start: 2005
  5. DIANEAL LOW CALCIUM [Suspect]
     Route: 033
     Dates: start: 2005
  6. DIANEAL LOW CALCIUM [Suspect]
     Route: 033
     Dates: start: 2005
  7. DIANEAL LOW CALCIUM (ULTRABAG) [Suspect]
     Indication: RENAL FAILURE CHRONIC
     Route: 033
     Dates: start: 2005
  8. DIANEAL LOW CALCIUM (ULTRABAG) [Suspect]
     Route: 033
     Dates: start: 2005
  9. DIANEAL LOW CALCIUM (ULTRABAG) [Suspect]
     Route: 033
     Dates: start: 2005

REACTIONS (1)
  - Hip fracture [Recovering/Resolving]
